FAERS Safety Report 9920186 (Version 2)
Quarter: 2014Q1

REPORT INFORMATION
  Report Type: Spontaneous
  Country: US (occurrence: US)
  Receive Date: 20140224
  Receipt Date: 20140224
  Transmission Date: 20141002
  Serious: Yes (Other)
  Sender: FDA-Public Use
  Company Number: US-BAXTER-2012BAX000083

PATIENT
  Sex: Male

DRUGS (1)
  1. FEIBA NF [Suspect]
     Indication: FACTOR VIII INHIBITION
     Dosage: 75U/KG
     Route: 042
     Dates: start: 201201

REACTIONS (1)
  - Factor VIII inhibition [Not Recovered/Not Resolved]
